FAERS Safety Report 7368150-8 (Version None)
Quarter: 2011Q1

REPORT INFORMATION
  Report Type: 
  Country: None (occurrence: None)
  Receive Date: 20110323
  Receipt Date: 20110311
  Transmission Date: 20110831
  Serious: Yes (Death, Other)
  Sender: FDA-Public Use
  Company Number: US-PFIZER INC-2011057680

PATIENT
  Sex: Male

DRUGS (2)
  1. NEURONTIN [Suspect]
     Dosage: 100 MG, UNK
  2. KLONOPIN [Concomitant]
     Dosage: 0.5 MG, UNK
     Dates: start: 20021223

REACTIONS (1)
  - COMPLETED SUICIDE [None]
